FAERS Safety Report 25401489 (Version 1)
Quarter: 2025Q2

REPORT INFORMATION
  Report Type: Spontaneous
  Country: US (occurrence: None)
  Receive Date: 20250604
  Receipt Date: 20250604
  Transmission Date: 20250717
  Serious: No
  Sender: FDA-CTU
  Company Number: None

PATIENT
  Age: 42 Year
  Sex: Female

DRUGS (1)
  1. ZYRTEC [Suspect]
     Active Substance: CETIRIZINE HYDROCHLORIDE
     Indication: Hypersensitivity
     Dosage: FREQUENCY : DAILY;?
     Route: 048

REACTIONS (6)
  - Pruritus [None]
  - Urticaria [None]
  - Skin infection [None]
  - Erythema [None]
  - Sensitive skin [None]
  - Withdrawal syndrome [None]

NARRATIVE: CASE EVENT DATE: 20250215
